FAERS Safety Report 9789181 (Version 2)
Quarter: 2013Q4

REPORT INFORMATION
  Report Type: Spontaneous
  Country: US (occurrence: US)
  Receive Date: 20131230
  Receipt Date: 20131230
  Transmission Date: 20140711
  Serious: No
  Sender: FDA-Public Use
  Company Number: US-GILEAD-2013-0086666

PATIENT
  Age: 46 Year
  Sex: Female
  Weight: 63.39 kg

DRUGS (5)
  1. STRIBILD [Suspect]
     Indication: HIV INFECTION
     Dosage: UNK
     Route: 048
     Dates: start: 20130307
  2. AMLODIPINE [Concomitant]
     Indication: HYPERTENSION
     Dosage: 10 MG, UNK
     Route: 048
     Dates: start: 2010
  3. HYDROCHLOROTHIAZIDE [Concomitant]
     Indication: HYPERTENSION
     Dosage: 25 MG, UNK
     Route: 048
     Dates: start: 2010
  4. SUBOXONE [Concomitant]
     Indication: DEPENDENCE
     Dosage: 8 MG, UNK
     Route: 048
     Dates: start: 2008
  5. PREMARIN [Concomitant]
     Indication: HOT FLUSH
     Dosage: 0.9 MG, UNK
     Route: 048
     Dates: start: 2008

REACTIONS (2)
  - Decreased appetite [Recovered/Resolved]
  - Weight decreased [Recovered/Resolved]
